FAERS Safety Report 20664211 (Version 1)
Quarter: 2022Q2

REPORT INFORMATION
  Report Type: Spontaneous
  Country: HR (occurrence: HR)
  Receive Date: 20220401
  Receipt Date: 20220401
  Transmission Date: 20220720
  Serious: Yes (Other)
  Sender: FDA-Public Use
  Company Number: None

PATIENT
  Sex: Female

DRUGS (4)
  1. NEBIVOLOL [Suspect]
     Active Substance: NEBIVOLOL
     Dosage: UNIT DOSE 100MG,FREQUENCY TIME 1 DAYS, DURATION 1 DAYS
     Route: 048
     Dates: start: 20210924, end: 20210924
  2. OLANZAPINE [Suspect]
     Active Substance: OLANZAPINE
     Dosage: 1 DF = 1 TABLET, UNIT DOSE 4DF, FREQUENCY TIME  1 DAY, DURATION 1 DAY
     Route: 048
     Dates: start: 20210924, end: 20210924
  3. NORMABEL [Suspect]
     Active Substance: DIAZEPAM
     Dosage: UNIT DOSE 45MG, FREQUENCY TIME 1 DAYS,DURATION 1 DAY
     Route: 048
     Dates: start: 20210924, end: 20210924
  4. DEXKETOPROFEN\TRAMADOL [Suspect]
     Active Substance: DEXKETOPROFEN\TRAMADOL
     Dosage: UNK, DURATION 1 DAYS
     Route: 048
     Dates: start: 20210924, end: 20210924

REACTIONS (3)
  - Suicide attempt [Unknown]
  - Bradycardia [Unknown]
  - Intentional overdose [Unknown]

NARRATIVE: CASE EVENT DATE: 20210924
